FAERS Safety Report 5047776-0 (Version None)
Quarter: 2006Q3

REPORT INFORMATION
  Report Type: 
  Country: None (occurrence: None)
  Receive Date: 20060710
  Receipt Date: 20060710
  Transmission Date: 20061208
  Serious: Yes (Hospitalization)
  Sender: FDA-Public Use
  Company Number: None

PATIENT
  Age: 49 Year
  Sex: Male

DRUGS (12)
  1. RISPERIDONE [Suspect]
     Indication: SCHIZOPHRENIA
     Dosage: 8 MG PO QD
     Route: 048
     Dates: start: 20060201, end: 20060329
  2. BUPROPION HCL [Suspect]
     Indication: SCHIZOPHRENIA
     Dosage: 600 MG PO QD
     Route: 048
     Dates: start: 20060201, end: 20060329
  3. ACETAMINOPHEN 300 MG/CODEINE [Concomitant]
  4. BUPROPION HCL [Concomitant]
  5. BUPROPION HCL [Concomitant]
  6. CLONIDINE HCL [Concomitant]
  7. GATIFLOXACIN [Concomitant]
  8. HYDROCHLOROTHIAZIDE [Concomitant]
  9. IMIQUIMOD CREAM [Concomitant]
  10. LABETALOL HCL [Concomitant]
  11. METOPROLOL TARTRATE [Concomitant]
  12. MINOXIDIL [Concomitant]

REACTIONS (6)
  - ASTHENIA [None]
  - BLOOD CREATININE INCREASED [None]
  - BLOOD PRESSURE DIASTOLIC DECREASED [None]
  - INCORRECT DOSE ADMINISTERED [None]
  - MALAISE [None]
  - SYNCOPE [None]
